FAERS Safety Report 4693603-0 (Version None)
Quarter: 2005Q2

REPORT INFORMATION
  Report Type: 
  Country: None (occurrence: None)
  Receive Date: 20050616
  Receipt Date: 20050613
  Transmission Date: 20051028
  Serious: Yes (Life-Threatening)
  Sender: FDA-Public Use
  Company Number: 2005-129360-NL

PATIENT
  Age: 65 Year
  Sex: Female

DRUGS (4)
  1. MIRTAZAPINE [Suspect]
     Indication: DEPRESSION
     Dosage: 30 MG ORAL
     Route: 048
     Dates: start: 20050515, end: 20050520
  2. SINEMET [Concomitant]
  3. PROPRANOLOL [Concomitant]
  4. DOTHIEPIN HYDROCHLORIDE [Concomitant]

REACTIONS (1)
  - THROMBOCYTOPENIA [None]
